FAERS Safety Report 7374167-X (Version None)
Quarter: 2011Q1

REPORT INFORMATION
  Report Type: 
  Country: None (occurrence: None)
  Receive Date: 20110325
  Receipt Date: 20110317
  Transmission Date: 20110831
  Serious: Yes (Hospitalization)
  Sender: FDA-Public Use
  Company Number: FR-JNJFOC-20110306678

PATIENT
  Sex: Female
  Weight: 47.3 kg

DRUGS (6)
  1. DEXAMETHASONE [Suspect]
     Indication: MULTIPLE MYELOMA
     Route: 048
     Dates: start: 20100812, end: 20110215
  2. BENDAMUSTINE [Suspect]
     Indication: MULTIPLE MYELOMA
     Route: 042
     Dates: start: 20100812, end: 20110201
  3. LYRICA [Concomitant]
     Indication: NEUROPATHY PERIPHERAL
     Route: 048
     Dates: start: 20100408
  4. ARIXTRA [Concomitant]
     Indication: THROMBOSIS
     Route: 042
  5. VELCADE [Suspect]
     Indication: MULTIPLE MYELOMA
     Route: 042
     Dates: start: 20100812, end: 20110215
  6. DURAGESIC-100 [Suspect]
     Indication: ANALGESIC THERAPY
     Route: 062
     Dates: start: 20100701

REACTIONS (1)
  - HIP ARTHROPLASTY [None]
